FAERS Safety Report 9390944 (Version 2)
Quarter: 2013Q3

REPORT INFORMATION
  Report Type: Spontaneous
  Country: US (occurrence: US)
  Receive Date: 20130709
  Receipt Date: 20130718
  Transmission Date: 20140515
  Serious: Yes (Other)
  Sender: FDA-Public Use
  Company Number: US-PFIZER INC-2013198195

PATIENT
  Age: 47 Year
  Sex: Male
  Weight: 90.7 kg

DRUGS (11)
  1. EPIPEN [Suspect]
     Indication: FOOD ALLERGY
     Dosage: 0.3 MG, AS NEEDED, 1:1000, 0.3 ML
     Route: 030
     Dates: start: 20130629, end: 20130629
  2. EPIPEN [Suspect]
     Dosage: 0.3 MG, AS NEEDED
     Dates: start: 20130629, end: 20130629
  3. BENADRYL [Concomitant]
     Indication: FOOD ALLERGY
     Dosage: 50 MG, 2 TABLETS EVERY 4 HRS
     Route: 048
     Dates: start: 20130629, end: 20130701
  4. VITAMIN B1 [Concomitant]
     Dosage: 100 MG, 1X/DAY
     Route: 048
  5. OMEPRAZOLE [Concomitant]
     Dosage: 20 MG, 1X/DAY
     Route: 048
  6. LISINOPRIL [Concomitant]
     Dosage: 10 MG, 1X/DAY
     Route: 048
  7. VITAMINS [Concomitant]
     Dosage: UNK, QD
     Route: 048
  8. ACETYLSALICYLIC ACID [Concomitant]
     Dosage: 81 MG, 1X/DAY
     Route: 048
  9. LACTULOSE [Concomitant]
     Dosage: 10 GM/15 ML, BID
     Route: 048
  10. COLESTYRAMINE [Concomitant]
     Indication: BLOOD CHOLESTEROL
     Dosage: UNK
     Route: 048
  11. IBUPROFEN [Concomitant]
     Indication: HEADACHE
     Dosage: UNK, PRN
     Route: 065

REACTIONS (1)
  - Drug ineffective [Recovered/Resolved]
